FAERS Safety Report 7358135-X (Version None)
Quarter: 2011Q1

REPORT INFORMATION
  Report Type: 
  Country: None (occurrence: None)
  Receive Date: 20110317
  Receipt Date: 20110310
  Transmission Date: 20110831
  Serious: Yes (Hospitalization)
  Sender: FDA-Public Use
  Company Number: NL-MEDIMMUNE-MEDI-0012775

PATIENT
  Sex: Male
  Weight: 6.76 kg

DRUGS (3)
  1. SYNAGIS [Suspect]
     Route: 030
     Dates: start: 20101025, end: 20101025
  2. SYNAGIS [Suspect]
     Route: 030
     Dates: start: 20110107, end: 20110204
  3. SYNAGIS [Suspect]
     Route: 030
     Dates: start: 20100924, end: 20100924

REACTIONS (5)
  - RESPIRATION ABNORMAL [None]
  - MALAISE [None]
  - COUGH [None]
  - RESPIRATORY TRACT INFECTION [None]
  - CARDIAC OPERATION [None]
